FAERS Safety Report 14755181 (Version 6)
Quarter: 2021Q3

REPORT INFORMATION
  Report Type: Spontaneous
  Country: US (occurrence: US)
  Receive Date: 20180413
  Receipt Date: 20210714
  Transmission Date: 20211014
  Serious: Yes (Hospitalization, Other)
  Sender: FDA-Public Use
  Company Number: US-ROCHE-2105323

PATIENT
  Age: 46 Year
  Sex: Female
  Weight: 52.21 kg

DRUGS (7)
  1. LAMICTAL [Concomitant]
     Active Substance: LAMOTRIGINE
     Indication: SEIZURE
  2. CLONAZEPAM. [Suspect]
     Active Substance: CLONAZEPAM
     Dosage: ONGOING:YES
     Route: 065
     Dates: start: 2017
  3. ATIVAN [Suspect]
     Active Substance: LORAZEPAM
     Indication: ANXIETY
     Dosage: TAPER DOWN DOSING ;ONGOING: NO
     Route: 065
     Dates: start: 20080328, end: 20080402
  4. EFFEXOR [Concomitant]
     Active Substance: VENLAFAXINE HYDROCHLORIDE
     Dosage: ONGOING:UNKNOWN
     Dates: start: 200806
  5. ATIVAN [Suspect]
     Active Substance: LORAZEPAM
     Indication: PANIC DISORDER
  6. CLONAZEPAM. [Suspect]
     Active Substance: CLONAZEPAM
     Indication: PANIC DISORDER
     Dosage: ONGOING:NO
     Route: 065
     Dates: start: 200806
  7. CLONAZEPAM. [Suspect]
     Active Substance: CLONAZEPAM
     Indication: ANXIETY
     Dosage: NO
     Route: 065
     Dates: start: 199406, end: 20080328

REACTIONS (25)
  - Tremor [Recovered/Resolved]
  - Dyspnoea [Recovered/Resolved]
  - Psychotic disorder [Unknown]
  - Emotional distress [Unknown]
  - Femur fracture [Recovered/Resolved]
  - Scapula fracture [Recovered/Resolved]
  - Bronchiectasis [Unknown]
  - Incorrect dose administered [Unknown]
  - Deafness unilateral [Not Recovered/Not Resolved]
  - Memory impairment [Unknown]
  - Fear [Unknown]
  - Depressed mood [Unknown]
  - Anxiety [Unknown]
  - Cerebral haemorrhage [Recovered/Resolved]
  - Hip fracture [Recovered/Resolved]
  - Multiple fractures [Unknown]
  - Deafness [Unknown]
  - Amnesia [Unknown]
  - Nervousness [Recovered/Resolved]
  - Seizure [Unknown]
  - Coma [Recovered/Resolved]
  - Rib fracture [Unknown]
  - Somnambulism [Unknown]
  - Anger [Unknown]
  - Hallucination [Unknown]

NARRATIVE: CASE EVENT DATE: 20080401
